FAERS Safety Report 4945676-5 (Version None)
Quarter: 2006Q1

REPORT INFORMATION
  Report Type: 
  Country: None (occurrence: None)
  Receive Date: 20060316
  Receipt Date: 20060306
  Transmission Date: 20060701
  Serious: Yes (Hospitalization, Other)
  Sender: FDA-Public Use
  Company Number: GB-BRISTOL-MYERS SQUIBB COMPANY-13304852

PATIENT
  Age: 60 Year
  Sex: Male

DRUGS (15)
  1. CISPLATIN [Suspect]
     Indication: GASTRIC CANCER
     Route: 041
     Dates: start: 20060113, end: 20060113
  2. FLUOROURACIL [Suspect]
     Indication: GASTRIC CANCER
     Route: 042
     Dates: start: 20060113, end: 20060116
  3. METFORMIN HYDROCHLORIDE [Concomitant]
     Indication: DIABETES MELLITUS
     Route: 048
     Dates: start: 20050101
  4. GLICLAZIDE [Concomitant]
     Indication: DIABETES MELLITUS
     Route: 048
     Dates: start: 19900101
  5. CO-DANTHRUSATE [Concomitant]
     Indication: CONSTIPATION
     Route: 048
     Dates: start: 20060103
  6. ZOMORPH [Concomitant]
     Indication: CANCER PAIN
     Route: 048
     Dates: start: 20060120
  7. DOMPERIDONE [Concomitant]
     Indication: PROPHYLAXIS OF NAUSEA AND VOMITING
     Route: 048
     Dates: start: 20060120
  8. CO-CODAMOL [Concomitant]
     Indication: CANCER PAIN
     Dates: start: 20060103, end: 20060120
  9. AMOXICILLIN [Concomitant]
     Dates: start: 20060110, end: 20060114
  10. ORAMORPH SR [Concomitant]
     Indication: CANCER PAIN
     Dates: start: 20060120
  11. DIFFLAM [Concomitant]
     Indication: STOMATITIS
     Dates: start: 20060120
  12. FORTISIP [Concomitant]
     Indication: MEDICAL DIET
     Dates: start: 20060112
  13. MUCAINE [Concomitant]
     Indication: STOMATITIS
     Route: 048
     Dates: start: 20060127
  14. SANDO-K [Concomitant]
     Indication: HYPOKALAEMIA
     Dates: start: 20060203
  15. GAVISCON [Concomitant]
     Indication: ABDOMINAL PAIN
     Dates: start: 20051101

REACTIONS (2)
  - GASTROINTESTINAL MOTILITY DISORDER [None]
  - MUCOSAL INFLAMMATION [None]
